FAERS Safety Report 9825285 (Version 1)
Quarter: 2014Q1

REPORT INFORMATION
  Report Type: Spontaneous
  Country: US (occurrence: None)
  Receive Date: 20140115
  Receipt Date: 20140115
  Transmission Date: 20141002
  Serious: Yes (Hospitalization)
  Sender: FDA-Public Use
  Company Number: None

PATIENT
  Age: 81 Year
  Sex: Male
  Weight: 100 kg

DRUGS (28)
  1. ZOLPIDEM [Suspect]
     Indication: INSOMNIA
     Dosage: 5 MG  PRN/AS NEEDED  ORAL?PRIOR TO ADMISSION
     Route: 048
  2. OXYCODONE/ACETAMINOPHEN 5/325 [Suspect]
     Indication: PAIN
     Dosage: ONE TABLET  PRN/AS NEEDED ORAL?PRIOR TO ADMISSION
     Route: 048
  3. METFORMIN [Concomitant]
  4. ACETAMINOPHEN [Concomitant]
  5. ALLOPURINOL [Concomitant]
  6. ALBUTEROL/IPRATROPIUM [Concomitant]
  7. WARFARIN [Concomitant]
  8. ASPIRIN [Concomitant]
  9. GLIPIZIDE [Concomitant]
  10. ATORVASTATIN [Concomitant]
  11. DOCUSATE/SENNA [Concomitant]
  12. OMEPRAZOLE [Concomitant]
  13. LISINOPRIL [Concomitant]
  14. FUROSEMIDE [Concomitant]
  15. METOPROLOL [Concomitant]
  16. POLYETHYLENE GLYCOL [Concomitant]
  17. CHOLECALCIFEROL [Concomitant]
  18. GUAIFENESIN DM [Concomitant]
  19. GABAPENTIN [Concomitant]
  20. INSULIN ASPART [Concomitant]
  21. INSULIN GLARGINE [Concomitant]
  22. OXYMETAZOLINE [Concomitant]
  23. FLUTICASONE/SALMETEROL [Concomitant]
  24. ARTIFICIAL TEARS [Concomitant]
  25. OCULAR LUBRICANT OPHTH OINTMENT [Concomitant]
  26. TIOTROPIUM [Concomitant]
  27. BETAMETHASONE DIPROPIONATE [Concomitant]
  28. SILVER SULFADIAZINE [Concomitant]

REACTIONS (3)
  - Asthenia [None]
  - Fall [None]
  - Dehydration [None]
